FAERS Safety Report 12070269 (Version 2)
Quarter: 2016Q2

REPORT INFORMATION
  Report Type: Spontaneous
  Country: AU (occurrence: AU)
  Receive Date: 20160211
  Receipt Date: 20160418
  Transmission Date: 20160815
  Serious: Yes (Other)
  Sender: FDA-Public Use
  Company Number: AU-PFIZER INC-2016027438

PATIENT
  Age: 82 Year
  Sex: Female
  Weight: 108 kg

DRUGS (26)
  1. LYRICA [Suspect]
     Active Substance: PREGABALIN
     Indication: NEURALGIA
     Dosage: 150MG IN THE MORNING AND 300MG AT NIGHT
     Route: 048
     Dates: start: 20151229
  2. OESTRADIOL [Concomitant]
     Active Substance: ESTROGENS
     Dosage: 10 UG, 2X/WEEK
  3. PANADOL [Concomitant]
     Active Substance: ACETAMINOPHEN
     Dosage: 1330 MG, 3X/DAY
  4. WARFARIN [Concomitant]
     Active Substance: WARFARIN
     Dosage: 2 MG, AS DIRECTED
  5. LYRICA [Suspect]
     Active Substance: PREGABALIN
     Dosage: 150 MG, DAILY
     Route: 048
  6. OXYCONTIN [Concomitant]
     Active Substance: OXYCODONE HYDROCHLORIDE
     Dosage: 50 MG, 2X/DAY
  7. ASMOL /00139501/ [Concomitant]
     Dosage: 5MG/2.5ML, AS NEEDED
  8. GAVISCON P LIQUID [Concomitant]
     Dosage: 20 ML, AS NEEDED
  9. SALBUTAMOL [Concomitant]
     Active Substance: ALBUTEROL
     Dosage: 200 UG, AS NEEDED
  10. LYRICA [Suspect]
     Active Substance: PREGABALIN
     Dosage: 125 MG, DAILY
     Route: 048
     Dates: start: 20160118
  11. FRUSEMIDE /00032601/ [Concomitant]
     Active Substance: FUROSEMIDE
     Dosage: 40 MG, 2X/DAY
  12. SERETIDE MDI [Concomitant]
     Active Substance: FLUTICASONE PROPIONATE\SALMETEROL XINAFOATE
     Dosage: 2 PUFFS TWICE A DAY
  13. WARFARIN [Concomitant]
     Active Substance: WARFARIN
     Dosage: 5 MG, AS DIRECTED
  14. EFFEXOR XR [Concomitant]
     Active Substance: VENLAFAXINE HYDROCHLORIDE
     Dosage: 75 MG, 1X/DAY
  15. PROLIA [Concomitant]
     Active Substance: DENOSUMAB
     Dosage: 60MG/ML, AS NEEDED
  16. LYRICA [Suspect]
     Active Substance: PREGABALIN
     Dosage: 25 MG, UNK
     Route: 048
  17. IKOREL [Concomitant]
     Active Substance: NICORANDIL
     Dosage: 20 MG, 1X/DAY
  18. CEPHALEXIN /00145501/ [Concomitant]
     Active Substance: CEPHALEXIN
     Dosage: 500 MG, 2X/DAY FOR 10 DAYS
  19. GLYCERYL TRINITRATE [Concomitant]
     Active Substance: NITROGLYCERIN
     Dosage: 400 UG, AS NEEDED
  20. VITAMIN D /00107901/ [Concomitant]
     Active Substance: ERGOCALCIFEROL
     Dosage: 1000 IU, 1X/DAY
  21. BISOPROLOL [Concomitant]
     Active Substance: BISOPROLOL
     Dosage: 2.5 MG, 1X/DAY
  22. NEXIUM [Concomitant]
     Active Substance: ESOMEPRAZOLE MAGNESIUM
     Dosage: 20 MG, 1X/DAY 1 BEFORE BED
  23. RANITIDINE. [Concomitant]
     Active Substance: RANITIDINE
     Dosage: 150 MG, 2X/DAY
  24. OLMETEC [Concomitant]
     Active Substance: OLMESARTAN MEDOXOMIL
     Dosage: 40 MG, 1X/DAY
  25. SPIRONOLACTONE. [Concomitant]
     Active Substance: SPIRONOLACTONE
     Dosage: 25 MG, 1X/DAY
  26. WARFARIN [Concomitant]
     Active Substance: WARFARIN
     Indication: ATRIAL FIBRILLATION
     Dosage: 1MG, AS DIRECTED

REACTIONS (4)
  - Pericardial effusion [Recovering/Resolving]
  - Disease recurrence [Recovered/Resolved]
  - Oedema peripheral [Recovering/Resolving]
  - Asthma [Recovered/Resolved]

NARRATIVE: CASE EVENT DATE: 201601
